FAERS Safety Report 4525515-7 (Version None)
Quarter: 2004Q4

REPORT INFORMATION
  Report Type: 
  Country: None (occurrence: None)
  Receive Date: 20041112
  Receipt Date: 20040629
  Transmission Date: 20050328
  Serious: Yes (Hospitalization)
  Sender: FDA-Public Use
  Company Number: M2004.6792

PATIENT
  Age: 56 Year
  Sex: Female
  Weight: 80.7403 kg

DRUGS (4)
  1. METHYLPREDNISOLONE 4MG TAB [Suspect]
     Indication: ASTHMA
     Dosage: UD, DOSE PAK, ORAL
     Route: 048
     Dates: start: 20031221, end: 20031226
  2. AUGMENTIN XR [Concomitant]
  3. ALBUTEROL [Concomitant]
  4. VALTREX [Concomitant]

REACTIONS (1)
  - EYE INFECTION [None]
